FAERS Safety Report 19812959 (Version 1)
Quarter: 2021Q3

REPORT INFORMATION
  Report Type: Spontaneous
  Country: US (occurrence: US)
  Receive Date: 20210909
  Receipt Date: 20210909
  Transmission Date: 20211014
  Serious: No
  Sender: FDA-Public Use
  Company Number: US-PERRIGO-21US002899

PATIENT
  Age: 25 Year
  Sex: Female
  Weight: 81.63 kg

DRUGS (2)
  1. MINOXIDIL. [Suspect]
     Active Substance: MINOXIDIL
     Indication: ALOPECIA
     Dosage: 1 ML, QD
     Route: 061
     Dates: start: 20210212, end: 202102
  2. MINOXIDIL. [Suspect]
     Active Substance: MINOXIDIL
     Dosage: 1 ML, QD
     Route: 061
     Dates: start: 202102, end: 20210224

REACTIONS (4)
  - Headache [Recovered/Resolved]
  - Inappropriate schedule of product administration [Recovered/Resolved]
  - Seborrhoea [Recovered/Resolved]
  - Product administered at inappropriate site [Recovered/Resolved]

NARRATIVE: CASE EVENT DATE: 202102
